FAERS Safety Report 20263026 (Version 1)
Quarter: 2021Q4

REPORT INFORMATION
  Report Type: Spontaneous
  Country: US (occurrence: US)
  Receive Date: 20211231
  Receipt Date: 20211231
  Transmission Date: 20220304
  Serious: No
  Sender: FDA-Public Use
  Company Number: US-ORGANON-O2112USA001586

PATIENT
  Age: 69 Year
  Sex: Male

DRUGS (2)
  1. CLARINEX [Suspect]
     Active Substance: DESLORATADINE
     Indication: Sinusitis
     Dosage: 1 TABLET DAILY
     Route: 048
  2. CLARINEX [Suspect]
     Active Substance: DESLORATADINE
     Dosage: AS NEEDED

REACTIONS (2)
  - Product dose omission issue [Unknown]
  - Product availability issue [Unknown]

NARRATIVE: CASE EVENT DATE: 20200626
